FAERS Safety Report 5312445-6 (Version None)
Quarter: 2007Q2

REPORT INFORMATION
  Report Type: 
  Country: None (occurrence: None)
  Receive Date: 20070430
  Receipt Date: 20070413
  Transmission Date: 20071010
  Serious: No
  Sender: FDA-Public Use
  Company Number: 2006UW28229

PATIENT
  Age: 36 Year
  Sex: Female

DRUGS (5)
  1. NEXIUM [Suspect]
     Indication: GASTROOESOPHAGEAL REFLUX DISEASE
     Route: 048
     Dates: start: 20050901, end: 20061218
  2. NEXIUM [Suspect]
     Route: 048
     Dates: start: 20061214
  3. HYZAAR [Concomitant]
  4. ATENOLOL [Concomitant]
  5. ASPIRIN [Concomitant]

REACTIONS (6)
  - ARTHRALGIA [None]
  - ERYTHEMA [None]
  - FACE OEDEMA [None]
  - HYPERHIDROSIS [None]
  - PRURITUS [None]
  - RASH [None]
